FAERS Safety Report 7795277-9 (Version None)
Quarter: 2011Q4

REPORT INFORMATION
  Report Type: 
  Country: None (occurrence: None)
  Receive Date: 20111004
  Receipt Date: 20110923
  Transmission Date: 20120403
  Serious: Yes (Hospitalization)
  Sender: FDA-Public Use
  Company Number: PHHY2011US43426

PATIENT
  Sex: Male

DRUGS (1)
  1. GLEEVEC [Suspect]
     Indication: CHRONIC MYELOID LEUKAEMIA
     Dosage: 400 MG, DAILY
     Route: 048
     Dates: start: 20110421

REACTIONS (7)
  - ARTHRALGIA [None]
  - BRONCHITIS [None]
  - FATIGUE [None]
  - ASTHENIA [None]
  - NAUSEA [None]
  - VOMITING [None]
  - DIARRHOEA [None]
